FAERS Safety Report 8683155 (Version 3)
Quarter: 2012Q4

REPORT INFORMATION
  Report Type: 
  Country: DE (occurrence: DE)
  Receive Date: 20120726
  Receipt Date: 20121016
  Transmission Date: 20130627
  Serious: Yes (Other)
  Sender: FDA-Public Use
  Company Number: DE-BRISTOL-MYERS SQUIBB COMPANY-16778037

PATIENT
  Age: 12 Year
  Sex: Male
  Weight: 41 kg

DRUGS (1)
  1. ABILIFY TABS 5 MG [Suspect]
     Indication: ASPERGER^S DISORDER
     Dosage: 1df=1/2 tab of 5mg
dose inc 5 mg:14Oct11-1Nov11
dose red 1/2 tabs:2Nov11-5Dec11
     Route: 048
     Dates: start: 20110919

REACTIONS (5)
  - Pancreatitis [Recovered/Resolved]
  - Anxiety [Recovered/Resolved]
  - Gastrointestinal pain [Recovered/Resolved]
  - Intention tremor [Recovered/Resolved]
  - Off label use [Unknown]
